FAERS Safety Report 16301367 (Version 2)
Quarter: 2019Q2

REPORT INFORMATION
  Report Type: Spontaneous
  Country: HR (occurrence: HR)
  Receive Date: 20190510
  Receipt Date: 20190607
  Transmission Date: 20190711
  Serious: No
  Sender: FDA-Public Use
  Company Number: HR-GILEAD-2019-0406941

PATIENT
  Age: 53 Year

DRUGS (6)
  1. XARELTO [Concomitant]
     Active Substance: RIVAROXABAN
  2. VOSEVI [Suspect]
     Active Substance: SOFOSBUVIR\VELPATASVIR\VOXILAPREVIR
     Indication: HEPATITIS C
     Dosage: 400/100/100 MG
     Route: 048
     Dates: start: 20190301
  3. TANYZ [Concomitant]
     Active Substance: TAMSULOSIN HYDROCHLORIDE
  4. ADVAGRAF [Concomitant]
     Active Substance: TACROLIMUS
  5. CONCOR [Concomitant]
     Active Substance: BISOPROLOL FUMARATE
  6. CELLCEPT [Concomitant]
     Active Substance: MYCOPHENOLATE MOFETIL\MYCOPHENOLATE MOFETIL HYDROCHLORIDE

REACTIONS (2)
  - Flatulence [Not Recovered/Not Resolved]
  - Diarrhoea [Not Recovered/Not Resolved]
